FAERS Safety Report 24379955 (Version 1)
Quarter: 2024Q3

REPORT INFORMATION
  Report Type: Spontaneous
  Country: FR (occurrence: FR)
  Receive Date: 20240930
  Receipt Date: 20240930
  Transmission Date: 20241017
  Serious: Yes (Other)
  Sender: MYLAN
  Company Number: None

PATIENT
  Age: 67 Year
  Sex: Female
  Weight: 56 kg

DRUGS (9)
  1. IRINOTECAN [Suspect]
     Active Substance: IRINOTECAN
     Indication: Adenocarcinoma pancreas
     Dosage: 320 MILLIGRAM, BIWEEKLY
     Route: 042
     Dates: start: 20231019, end: 20240628
  2. OXALIPLATIN [Suspect]
     Active Substance: OXALIPLATIN
     Indication: Adenocarcinoma pancreas
     Dosage: 150 MILLIGRAM, BIWEEKLY
     Route: 042
     Dates: start: 20231019
  3. METHYLPREDNISOLONE [Suspect]
     Active Substance: METHYLPREDNISOLONE
     Indication: Adenocarcinoma pancreas
     Dosage: 60 MILLIGRAM, BIWEEKLY
     Route: 042
     Dates: start: 20231019
  4. CANDESARTAN [Suspect]
     Active Substance: CANDESARTAN
     Indication: Hypertension
     Dosage: 16 MILLIGRAM, QD
     Route: 048
  5. FLUOROURACIL [Suspect]
     Active Substance: FLUOROURACIL
     Indication: Adenocarcinoma pancreas
     Dosage: 4960 MILLIGRAM, BIWEEKLY
     Route: 042
     Dates: start: 20231019
  6. INNOHEP [Suspect]
     Active Substance: TINZAPARIN SODIUM
     Indication: Venous thrombosis
     Dosage: 1 DOSAGE FORM, QD
     Route: 058
  7. HYDROCHLOROTHIAZIDE [Suspect]
     Active Substance: HYDROCHLOROTHIAZIDE
     Indication: Hypertension
     Dosage: 12.5 MILLIGRAM, QD
     Route: 048
  8. CALCIUM [Suspect]
     Active Substance: CALCIUM
     Indication: Adenocarcinoma pancreas
     Dosage: 350 MILLIGRAM, BIWEEKLY
     Route: 042
     Dates: start: 20231019
  9. LEVOTHYROXINE [Suspect]
     Active Substance: LEVOTHYROXINE\LEVOTHYROXINE SODIUM
     Indication: Hypothyroidism
     Dosage: 137 MICROGRAM, QD
     Route: 048

REACTIONS (1)
  - Cutaneous lupus erythematosus [Not Recovered/Not Resolved]

NARRATIVE: CASE EVENT DATE: 20240101
